FAERS Safety Report 5843995-1 (Version None)
Quarter: 2008Q3

REPORT INFORMATION
  Report Type: 
  Country: None (occurrence: None)
  Receive Date: 20080813
  Receipt Date: 20070824
  Transmission Date: 20090109
  Serious: No
  Sender: FDA-Public Use
  Company Number: US-TYCO HEALTHCARE/MALLINCKRODT-T200701025

PATIENT

DRUGS (1)
  1. CONRAY 30 [Suspect]

REACTIONS (1)
  - SKIN LACERATION [None]
